FAERS Safety Report 10398165 (Version 1)
Quarter: 2014Q1

REPORT INFORMATION
  Report Type: Spontaneous
  Country: US (occurrence: None)
  Receive Date: 20130621
  Receipt Date: 20130621
  Transmission Date: 20141002
  Serious: Yes (Other)
  Sender: FDA-Public Use
  Company Number: 081923

PATIENT
  Sex: Female
  Weight: 81 kg

DRUGS (5)
  1. CIMZIA [Suspect]
     Indication: RHEUMATOID ARTHRITIS
     Route: 058
     Dates: start: 20130228
  2. SYNTHROID [Concomitant]
  3. METOPROLOL [Concomitant]
  4. HYDROCHLOROTHIAZIDE W/ LOSARTAN [Concomitant]
  5. HYDROXYCHLOROQUINE [Concomitant]

REACTIONS (6)
  - Psoriasis [None]
  - Dermatomyositis [None]
  - Lip disorder [None]
  - Swelling [None]
  - Oedema mouth [None]
  - Systemic lupus erythematosus [None]
